FAERS Safety Report 13418283 (Version 3)
Quarter: 2017Q3

REPORT INFORMATION
  Report Type: Report from Study
  Country: US (occurrence: US)
  Receive Date: 20170406
  Receipt Date: 20170801
  Transmission Date: 20171127
  Serious: Yes (Hospitalization)
  Sender: FDA-Public Use
  Company Number: US-EISAI MEDICAL RESEARCH-EC-2016-014074

PATIENT
  Age: 71 Year
  Sex: Male
  Weight: 78.9 kg

DRUGS (9)
  1. SIMVASTATIN. [Concomitant]
     Active Substance: SIMVASTATIN
     Route: 048
     Dates: start: 2012
  2. LORCASERIN [Suspect]
     Active Substance: LORCASERIN HYDROCHLORIDE
     Route: 048
     Dates: start: 20160209, end: 20160222
  3. COREG [Concomitant]
     Active Substance: CARVEDILOL
     Route: 048
     Dates: start: 2012
  4. LORCASERIN [Suspect]
     Active Substance: LORCASERIN HYDROCHLORIDE
     Route: 048
     Dates: start: 20161116, end: 20170303
  5. LORCASERIN [Suspect]
     Active Substance: LORCASERIN HYDROCHLORIDE
     Route: 048
     Dates: start: 20170314
  6. FUROSEMIDE. [Concomitant]
     Active Substance: FUROSEMIDE
  7. LORCASERIN [Suspect]
     Active Substance: LORCASERIN HYDROCHLORIDE
     Indication: WEIGHT CONTROL
     Route: 048
     Dates: start: 20140804, end: 20160124
  8. ISOSORBIDE MONONITRATE. [Concomitant]
     Active Substance: ISOSORBIDE MONONITRATE
  9. CARVEDILOL. [Concomitant]
     Active Substance: CARVEDILOL

REACTIONS (6)
  - Cardiac failure congestive [Recovered/Resolved]
  - Urinary tract obstruction [Recovered/Resolved]
  - Cellulitis [Recovered/Resolved]
  - Acute kidney injury [Recovering/Resolving]
  - Ejection fraction abnormal [Not Recovered/Not Resolved]
  - Acute left ventricular failure [Recovering/Resolving]

NARRATIVE: CASE EVENT DATE: 20160125
